FAERS Safety Report 10051692 (Version 1)
Quarter: 2014Q1

REPORT INFORMATION
  Report Type: Spontaneous
  Country: US (occurrence: None)
  Receive Date: 20140331
  Receipt Date: 20140331
  Transmission Date: 20141002
  Serious: Yes (Death)
  Sender: FDA-Public Use
  Company Number: UTC-046326

PATIENT
  Age: 47 Year
  Sex: 0
  Weight: 76 kg

DRUGS (4)
  1. TYVASO [Suspect]
     Indication: COR PULMONALE CHRONIC
     Dosage: 72-90 MICROGRAMS (4 IN 1 D)
     Route: 055
     Dates: start: 20100622
  2. LETAIRIS (AMBRISENTAN) (TABLETS) [Concomitant]
  3. COUMADIN (WARFARIN SODIUM) [Concomitant]
  4. REVATIO (SILDENAFIL CITRATE) [Concomitant]

REACTIONS (1)
  - Death [None]
